FAERS Safety Report 9275922 (Version 1)
Quarter: 2013Q2

REPORT INFORMATION
  Report Type: Report from Study
  Country: GB (occurrence: GB)
  Receive Date: 20130507
  Receipt Date: 20130507
  Transmission Date: 20140414
  Serious: Yes (Other)
  Sender: FDA-Public Use
  Company Number: GB-ROCHE-1220705

PATIENT
  Sex: 0

DRUGS (6)
  1. RITUXIMAB [Suspect]
     Indication: LUPUS NEPHRITIS
     Dosage: 2 DOSES GIVEN
     Route: 064
  2. MYCOPHENOLATE MOFETIL [Suspect]
     Indication: LUPUS NEPHRITIS
     Route: 064
  3. METHYLPREDNISOLONE [Suspect]
     Indication: LUPUS NEPHRITIS
     Dosage: 2 DOSES GIVEN
     Route: 064
  4. AZATHIOPRINE [Suspect]
     Indication: LUPUS NEPHRITIS
     Route: 064
  5. ALENDRONIC ACID [Suspect]
     Indication: PRODUCT USED FOR UNKNOWN INDICATION
     Route: 064
  6. HYDROXYCHLOROQUINE [Concomitant]
     Indication: LUPUS NEPHRITIS
     Route: 064

REACTIONS (2)
  - Oesophageal atresia [Unknown]
  - Maternal exposure timing unspecified [Unknown]
